FAERS Safety Report 16785842 (Version 2)
Quarter: 2019Q3

REPORT INFORMATION
  Report Type: Spontaneous
  Country: US (occurrence: US)
  Receive Date: 20190909
  Receipt Date: 20190917
  Transmission Date: 20191005
  Serious: No
  Sender: FDA-Public Use
  Company Number: US-PFIZER INC-2019386951

PATIENT
  Sex: Female

DRUGS (1)
  1. ELETRIPTAN HBR [Suspect]
     Active Substance: ELETRIPTAN HYDROBROMIDE
     Indication: HEADACHE
     Dosage: UNK

REACTIONS (1)
  - Therapeutic product effect decreased [Unknown]
